FAERS Safety Report 6396784-6 (Version None)
Quarter: 2009Q4

REPORT INFORMATION
  Report Type: 
  Country: None (occurrence: None)
  Receive Date: 20091012
  Receipt Date: 20090818
  Transmission Date: 20100525
  Serious: No
  Sender: FDA-Public Use
  Company Number: US-ASTRAZENECA-2009SE08679

PATIENT
  Sex: Female
  Weight: 54.4 kg

DRUGS (7)
  1. SYMBICORT [Suspect]
     Indication: EMPHYSEMA
     Route: 055
     Dates: start: 20080801
  2. TOPROL-XL [Concomitant]
  3. ASPIRIN [Concomitant]
  4. COZAAR [Concomitant]
  5. FORTE SHOTS [Concomitant]
     Indication: OSTEOPOROSIS
  6. EVISTA [Concomitant]
  7. CLARITIN [Concomitant]

REACTIONS (1)
  - DYSGEUSIA [None]
